FAERS Safety Report 7426017-0 (Version None)
Quarter: 2011Q2

REPORT INFORMATION
  Report Type: 
  Country: None (occurrence: None)
  Receive Date: 20110420
  Receipt Date: 20110414
  Transmission Date: 20111010
  Serious: Yes (Hospitalization)
  Sender: FDA-Public Use
  Company Number: GB-ROCHE-771759

PATIENT
  Age: 9 Year
  Sex: Female

DRUGS (3)
  1. PARACETAMOL [Suspect]
     Route: 048
  2. CEFTRIAXONE [Suspect]
     Route: 042
  3. IBUPROFEN [Suspect]
     Route: 048

REACTIONS (3)
  - RENAL FAILURE ACUTE [None]
  - RENAL PAPILLARY NECROSIS [None]
  - URETERIC OBSTRUCTION [None]
